FAERS Safety Report 20817612 (Version 1)
Quarter: 2022Q2

REPORT INFORMATION
  Report Type: Spontaneous
  Country: CN (occurrence: None)
  Receive Date: 20220512
  Receipt Date: 20220512
  Transmission Date: 20220721
  Serious: Yes (Other)
  Sender: FDA-Public Use
  Company Number: CN-ROCHE-3094443

PATIENT
  Age: 71 Year
  Sex: Female

DRUGS (18)
  1. OBINUTUZUMAB [Suspect]
     Active Substance: OBINUTUZUMAB
     Indication: Diffuse large B-cell lymphoma recurrent
     Dosage: G-CHOPE
     Route: 041
     Dates: start: 20210911
  2. OBINUTUZUMAB [Suspect]
     Active Substance: OBINUTUZUMAB
     Dosage: G-CHOP
     Route: 041
     Dates: start: 20211009
  3. RITUXIMAB [Suspect]
     Active Substance: RITUXIMAB
     Indication: Diffuse large B-cell lymphoma recurrent
     Dosage: R-EPOCH
     Route: 041
     Dates: start: 202005, end: 202010
  4. RITUXIMAB [Suspect]
     Active Substance: RITUXIMAB
     Dosage: R
     Route: 041
  5. CYCLOPHOSPHAMIDE [Concomitant]
     Active Substance: CYCLOPHOSPHAMIDE
     Indication: Diffuse large B-cell lymphoma recurrent
     Dosage: R-EPOCH
     Dates: start: 202005, end: 202010
  6. CYCLOPHOSPHAMIDE [Concomitant]
     Active Substance: CYCLOPHOSPHAMIDE
     Dosage: G-CHOPE
     Dates: start: 20210911
  7. CYCLOPHOSPHAMIDE [Concomitant]
     Active Substance: CYCLOPHOSPHAMIDE
     Dosage: G-CHOP, 1000-1200MG
     Dates: start: 20211009
  8. DOXORUBICIN [Concomitant]
     Active Substance: DOXORUBICIN
     Indication: Diffuse large B-cell lymphoma recurrent
     Dosage: R-EPOCH
     Dates: start: 202005, end: 202010
  9. DOXORUBICIN [Concomitant]
     Active Substance: DOXORUBICIN
     Dosage: G-CHOPE
     Dates: start: 20210911
  10. DOXORUBICIN [Concomitant]
     Active Substance: DOXORUBICIN
     Dosage: G-CHOP, 30-40MG
     Dates: start: 20211009
  11. VINDESINE [Concomitant]
     Active Substance: VINDESINE
     Indication: Diffuse large B-cell lymphoma recurrent
     Dosage: R-EPOCH
     Dates: start: 202005, end: 202010
  12. VINCRISTINE [Concomitant]
     Active Substance: VINCRISTINE
     Indication: Diffuse large B-cell lymphoma recurrent
     Dosage: R-EPOCH
     Dates: start: 202005, end: 202010
  13. VINCRISTINE [Concomitant]
     Active Substance: VINCRISTINE
     Dosage: G-CHOP
     Dates: start: 20211009
  14. ETOPOSIDE [Concomitant]
     Active Substance: ETOPOSIDE
     Indication: Diffuse large B-cell lymphoma recurrent
     Dosage: R-EPOCH
     Dates: start: 202005, end: 202010
  15. ETOPOSIDE [Concomitant]
     Active Substance: ETOPOSIDE
     Dosage: G-CHOPE
     Dates: start: 20210911
  16. METHYLPREDNISOLONE [Concomitant]
     Active Substance: METHYLPREDNISOLONE
     Indication: Diffuse large B-cell lymphoma recurrent
     Dosage: R-EPOCH
     Dates: start: 202005, end: 202010
  17. METHYLPREDNISOLONE [Concomitant]
     Active Substance: METHYLPREDNISOLONE
     Dosage: G-CHOPE
     Dates: start: 20210911
  18. PREDNISONE [Concomitant]
     Active Substance: PREDNISONE
     Indication: Diffuse large B-cell lymphoma recurrent
     Dosage: G-CHOP
     Dates: start: 20211009

REACTIONS (6)
  - Syncope [Unknown]
  - Agranulocytosis [Recovering/Resolving]
  - Platelet count decreased [Recovering/Resolving]
  - White blood cell count decreased [Recovering/Resolving]
  - Infection [Recovering/Resolving]
  - Off label use [Unknown]
